FAERS Safety Report 4398125-2 (Version None)
Quarter: 2004Q3

REPORT INFORMATION
  Report Type: 
  Country: None (occurrence: None)
  Receive Date: 20040713
  Receipt Date: 20040630
  Transmission Date: 20050211
  Serious: Yes (Other)
  Sender: FDA-Public Use
  Company Number: 2004044456

PATIENT
  Sex: Male
  Weight: 96.1626 kg

DRUGS (5)
  1. NEURONTIN [Suspect]
     Indication: NEUROPATHY
     Dosage: 3000 MG (3 IN D), ORAL
     Route: 048
  2. ASPIRIN [Concomitant]
  3. GLIPIZIDE [Concomitant]
  4. GEMFIBROZIL [Concomitant]
  5. VALSARTAN [Concomitant]

REACTIONS (1)
  - EMPHYSEMA [None]
